FAERS Safety Report 4945919-8 (Version None)
Quarter: 2006Q1

REPORT INFORMATION
  Report Type: 
  Country: None (occurrence: None)
  Receive Date: 20060316
  Receipt Date: 20060309
  Transmission Date: 20060701
  Serious: Yes (Death, Other)
  Sender: FDA-Public Use
  Company Number: TH-BOEHRINGER INGELHEIM PHARMACEUTICALS, INC.-2006-DE-01321GD

PATIENT

DRUGS (3)
  1. NEVIRAPINE [Suspect]
     Route: 015
  2. ZIDOVUDINE [Suspect]
     Route: 015
  3. LAMIVUDINE [Suspect]
     Route: 015

REACTIONS (5)
  - DEATH NEONATAL [None]
  - DRUG EXPOSURE DURING PREGNANCY [None]
  - HUMAN IMMUNODEFICIENCY VIRUS TRANSMISSION [None]
  - PREMATURE BABY [None]
  - SMALL FOR DATES BABY [None]
